FAERS Safety Report 9322328 (Version 1)
Quarter: 2013Q2

REPORT INFORMATION
  Report Type: Report from Study
  Country: CA (occurrence: CA)
  Receive Date: 20130531
  Receipt Date: 20130531
  Transmission Date: 20140414
  Serious: Yes (Other)
  Sender: FDA-Public Use
  Company Number: CA-ABBOTT-13P-028-1053383-00

PATIENT
  Sex: Female
  Weight: 70.37 kg

DRUGS (7)
  1. HUMIRA [Suspect]
     Indication: RHEUMATOID ARTHRITIS
     Route: 058
     Dates: start: 20130114
  2. METHOTREXATE [Concomitant]
     Indication: RHEUMATOID ARTHRITIS
     Dates: start: 20130115, end: 20130521
  3. CELEBREX [Concomitant]
     Indication: RHEUMATOID ARTHRITIS
     Dosage: PM
     Dates: start: 20130114
  4. TYLENOL EXTRA STRENGTH [Concomitant]
     Indication: RHEUMATOID ARTHRITIS
     Dosage: 1-2 TABLETS
     Dates: start: 20130114
  5. FOLIC ACID [Concomitant]
     Indication: RHEUMATOID ARTHRITIS
     Dates: start: 20130114, end: 20130521
  6. MICARDIS [Concomitant]
     Indication: BLOOD PRESSURE
     Dates: start: 20130114
  7. HYDROCHLOROTHIAZIDE [Concomitant]
     Indication: BLOOD PRESSURE
     Dates: start: 20130114

REACTIONS (2)
  - Osteoarthritis [Unknown]
  - Arthralgia [Unknown]
